FAERS Safety Report 23596730 (Version 2)
Quarter: 2024Q1

REPORT INFORMATION
  Report Type: Report from Study
  Country: TW (occurrence: None)
  Receive Date: 20240305
  Receipt Date: 20240315
  Transmission Date: 20240409
  Serious: Yes (Hospitalization, Other)
  Sender: FDA-Public Use
  Company Number: 2024A048651

PATIENT
  Sex: Male

DRUGS (1)
  1. IMFINZI [Suspect]
     Active Substance: DURVALUMAB
     Indication: Gallbladder adenocarcinoma
     Dosage: 480.0MG UNKNOWN
     Route: 041
     Dates: start: 20231222

REACTIONS (4)
  - Cholecystitis infective [Unknown]
  - Deficiency of bile secretion [Unknown]
  - Escherichia infection [Unknown]
  - Haemoglobin decreased [Unknown]
